FAERS Safety Report 5445225-1 (Version None)
Quarter: 2007Q3

REPORT INFORMATION
  Report Type: 
  Country: None (occurrence: None)
  Receive Date: 20070906
  Receipt Date: 20070827
  Transmission Date: 20080115
  Serious: Yes (Life-Threatening)
  Sender: FDA-Public Use
  Company Number: JP-PFIZER INC-2007048973

PATIENT
  Sex: Male

DRUGS (8)
  1. DILTIAZEM HYDROCHLORIDE [Suspect]
     Route: 048
     Dates: start: 20070515, end: 20070601
  2. ARTIST [Suspect]
     Route: 048
  3. CANDESARTAN CILEXETIL [Suspect]
     Dosage: DAILY DOSE:8MG
     Route: 048
  4. NORMONAL [Suspect]
     Dosage: DAILY DOSE:12.5MG
     Route: 048
  5. ADALAT [Suspect]
     Dosage: DAILY DOSE:40MG
     Route: 048
  6. WARFARIN POTASSIUM [Concomitant]
     Dosage: DAILY DOSE:2.5MG
     Route: 048
  7. ALLOZYM [Concomitant]
     Dosage: DAILY DOSE:100MG
     Route: 048
  8. JUVELA NICOTINATE [Concomitant]
     Route: 048

REACTIONS (2)
  - BRADYCARDIA [None]
  - CARDIAC ARREST [None]
